FAERS Safety Report 12516921 (Version 2)
Quarter: 2016Q3

REPORT INFORMATION
  Report Type: Spontaneous
  Country: US (occurrence: US)
  Receive Date: 20160630
  Receipt Date: 20160712
  Transmission Date: 20161109
  Serious: Yes (Other)
  Sender: FDA-Public Use
  Company Number: US-TEVA-671443USA

PATIENT
  Age: 28 Year
  Sex: Female

DRUGS (2)
  1. GRISEOFULVIN. [Suspect]
     Active Substance: GRISEOFULVIN
     Indication: ONYCHOMYCOSIS
     Dosage: 500MG PER DAY FOR 14 DAYS
     Route: 065
  2. IBUPROFEN. [Concomitant]
     Active Substance: IBUPROFEN
     Dosage: 2 DOSES OF 200MG OVER THE COUNTER, IN THE PAST 2 WEEKS
     Route: 065

REACTIONS (2)
  - Acute kidney injury [Recovering/Resolving]
  - Focal segmental glomerulosclerosis [Recovering/Resolving]
